FAERS Safety Report 11176613 (Version 1)
Quarter: 2015Q2

REPORT INFORMATION
  Report Type: Spontaneous
  Country: US (occurrence: None)
  Receive Date: 20150609
  Receipt Date: 20150609
  Transmission Date: 20150821
  Serious: Yes (Hospitalization, Other)
  Sender: FDA-Public Use
  Company Number: None

PATIENT
  Age: 50 Year
  Sex: Male

DRUGS (9)
  1. FOLIC ACID. [Concomitant]
     Active Substance: FOLIC ACID
  2. LIDOCAINE. [Suspect]
     Active Substance: LIDOCAINE
     Indication: OSTEOARTHRITIS
     Dates: start: 20150528
  3. DULOXETINE [Concomitant]
     Active Substance: DULOXETINE
  4. OMEPRAZOLE. [Concomitant]
     Active Substance: OMEPRAZOLE
  5. DEPO-MEDROL [Suspect]
     Active Substance: METHYLPREDNISOLONE ACETATE
     Indication: OSTEOARTHRITIS
     Dates: start: 20150528
  6. MARCAINE [Suspect]
     Active Substance: BUPIVACAINE HYDROCHLORIDE
     Indication: OSTEOARTHRITIS
     Dates: start: 20150528
  7. QUETIAPINE [Concomitant]
     Active Substance: QUETIAPINE
  8. SULFASALAZINE. [Concomitant]
     Active Substance: SULFASALAZINE
  9. LOSARTAN [Concomitant]
     Active Substance: LOSARTAN

REACTIONS (2)
  - Arthritis bacterial [None]
  - Injection site joint infection [None]

NARRATIVE: CASE EVENT DATE: 20150527
